FAERS Safety Report 8348397-4 (Version None)
Quarter: 2012Q2

REPORT INFORMATION
  Report Type: 
  Country: None (occurrence: None)
  Receive Date: 20120509
  Receipt Date: 20120502
  Transmission Date: 20120825
  Serious: Yes (Other)
  Sender: FDA-Public Use
  Company Number: DE-GILEAD-2012-0054188

PATIENT
  Sex: Male

DRUGS (7)
  1. AMBRISENTAN [Suspect]
     Indication: PULMONARY ARTERIAL HYPERTENSION
     Dosage: 5 MG, QD
     Route: 048
     Dates: start: 20120401
  2. TRUVADA [Concomitant]
     Indication: HIV INFECTION
     Dosage: UNK
     Route: 048
  3. TRUVADA [Concomitant]
     Dosage: UNK
     Route: 048
  4. NORVIR [Concomitant]
     Route: 048
  5. REYATAZ [Concomitant]
     Indication: HIV INFECTION
     Route: 048
  6. NORVIR [Concomitant]
     Indication: HIV INFECTION
     Route: 048
  7. REYATAZ [Concomitant]
     Route: 048

REACTIONS (3)
  - YELLOW SKIN [None]
  - HEPATIC ENZYME INCREASED [None]
  - HYPERBILIRUBINAEMIA [None]
